FAERS Safety Report 9770882 (Version 2)
Quarter: 2013Q4

REPORT INFORMATION
  Report Type: Spontaneous
  Country: DE (occurrence: DE)
  Receive Date: 20131218
  Receipt Date: 20131218
  Transmission Date: 20140711
  Serious: Yes (Other)
  Sender: FDA-Public Use
  Company Number: CHPA2013DE018167

PATIENT
  Age: 50 Year
  Sex: Female

DRUGS (1)
  1. FENISTIL PENCIVIR BEI LIPPENHERPES GETOENTE CREME [Suspect]
     Indication: ORAL HERPES
     Dosage: SMALL QUANTITY, ONCE
     Route: 061
     Dates: start: 20131202, end: 20131202

REACTIONS (6)
  - Feeling hot [Recovered/Resolved]
  - Malaise [Recovered/Resolved]
  - Skin swelling [Recovered/Resolved]
  - Erythema [Recovered/Resolved]
  - Burning sensation [Recovered/Resolved]
  - Hypersensitivity [Recovered/Resolved]
